FAERS Safety Report 21199213 (Version 3)
Quarter: 2022Q4

REPORT INFORMATION
  Report Type: Spontaneous
  Country: US (occurrence: US)
  Receive Date: 20220811
  Receipt Date: 20221116
  Transmission Date: 20230113
  Serious: Yes (Other)
  Sender: FDA-Public Use
  Company Number: US-BRISTOL-MYERS SQUIBB COMPANY-2022-085316

PATIENT
  Age: 70 Year
  Sex: Male

DRUGS (4)
  1. SPRYCEL [Suspect]
     Active Substance: DASATINIB
     Indication: Acute myeloid leukaemia
     Dosage: DAILY BY MOUTH
     Route: 048
     Dates: start: 20210602
  2. SPRYCEL [Suspect]
     Active Substance: DASATINIB
     Indication: White blood cell count increased
     Dosage: DAILY BY MOUTH
     Route: 048
     Dates: start: 20220104
  3. SPRYCEL [Suspect]
     Active Substance: DASATINIB
     Indication: Chronic myeloid leukaemia
  4. XARELTO [Suspect]
     Active Substance: RIVAROXABAN
     Indication: Thrombosis prophylaxis
     Route: 065

REACTIONS (4)
  - Dry skin [Unknown]
  - Rash [Unknown]
  - Thrombosis [Unknown]
  - Renal haemorrhage [Unknown]
